FAERS Safety Report 8154470-6 (Version None)
Quarter: 2012Q1

REPORT INFORMATION
  Report Type: 
  Country: None (occurrence: None)
  Receive Date: 20120221
  Receipt Date: 20120214
  Transmission Date: 20120608
  Serious: Yes (Hospitalization)
  Sender: FDA-Public Use
  Company Number: CA-B.I. PHARMACEUTICALS,INC./RIDGEFIELD-2012-CN-00365CN

PATIENT
  Age: 73 Year
  Sex: Male
  Weight: 99.79 kg

DRUGS (9)
  1. LANSOPRAZOLE [Concomitant]
     Route: 048
  2. ATORVASTATIN CALCIUM [Concomitant]
     Route: 048
  3. METFORMIN HCL [Concomitant]
     Route: 065
  4. ATACAND HCT [Concomitant]
     Route: 048
  5. ASPIRIN [Concomitant]
     Route: 065
  6. VITAMIN B-12 [Concomitant]
     Route: 065
  7. PRADAXA [Suspect]
     Dosage: 300 MG
     Route: 048
  8. BISOPROLOL FUMARATE [Concomitant]
     Route: 048
  9. FUROSEMIDE [Concomitant]
     Route: 048

REACTIONS (3)
  - GASTROINTESTINAL HAEMORRHAGE [None]
  - GASTRIC POLYPS [None]
  - CREATININE RENAL CLEARANCE DECREASED [None]
